FAERS Safety Report 15283804 (Version 1)
Quarter: 2018Q4

REPORT INFORMATION
  Report Type: Spontaneous
  Country: GB (occurrence: GB)
  Receive Date: 20180816
  Receipt Date: 20180816
  Transmission Date: 20190204
  Serious: Yes (Hospitalization, Other)
  Sender: FDA-Public Use
  Company Number: GB-BAUSCH-BL-2018-022219

PATIENT
  Age: 21 Year
  Sex: Male

DRUGS (5)
  1. DULOXETINE. [Suspect]
     Active Substance: DULOXETINE
     Indication: PRODUCT USED FOR UNKNOWN INDICATION
     Dosage: EXCESS AMOUNT
     Route: 065
  2. NOOPEPT [Suspect]
     Active Substance: OMBERACETAM
     Indication: PRODUCT USED FOR UNKNOWN INDICATION
     Route: 045
  3. DIAZEPAM. [Suspect]
     Active Substance: DIAZEPAM
     Indication: PRODUCT USED FOR UNKNOWN INDICATION
     Route: 065
  4. RISPERIDONE. [Suspect]
     Active Substance: RISPERIDONE
     Indication: PRODUCT USED FOR UNKNOWN INDICATION
     Dosage: EXCESS AMOUNT
     Route: 065
  5. COCAINE [Suspect]
     Active Substance: COCAINE
     Indication: PRODUCT USED FOR UNKNOWN INDICATION
     Route: 045

REACTIONS (8)
  - Muscle twitching [Recovered/Resolved]
  - Palpitations [Unknown]
  - Sinus tachycardia [Unknown]
  - Somnolence [Unknown]
  - Hypotension [Unknown]
  - Dystonia [Recovered/Resolved]
  - Toxicity to various agents [Unknown]
  - Facial spasm [Recovered/Resolved]
